FAERS Safety Report 7394261-7 (Version None)
Quarter: 2011Q2

REPORT INFORMATION
  Report Type: 
  Country: None (occurrence: None)
  Receive Date: 20110405
  Receipt Date: 20110331
  Transmission Date: 20111010
  Serious: Yes (Life-Threatening, Hospitalization)
  Sender: FDA-Public Use
  Company Number: NL-PFIZER INC-2010146420

PATIENT
  Age: 68 Year
  Sex: Male

DRUGS (7)
  1. SUTENT [Suspect]
     Indication: METASTATIC RENAL CELL CARCINOMA
     Dosage: DOSE ACCORDING TO PROTOCOL
     Dates: start: 20101025, end: 20101108
  2. METFORMIN [Concomitant]
     Dosage: 800 UNK, 2X/DAY
  3. LISINOPRIL [Concomitant]
     Dosage: 40 UNK, 1X/DAY
  4. GLIMEPIRIDE [Concomitant]
     Dosage: 2 UNK, 1X/DAY
  5. CRESTOR [Concomitant]
     Dosage: 10 UNK, 1X/DAY
  6. HYDROCHLOROTHIAZIDE [Concomitant]
     Dosage: 12.5 UNK, 1X/DAY
  7. ASCAL CARDIO [Concomitant]
     Dosage: 80 UNK, 1X/DAY

REACTIONS (1)
  - SEPSIS [None]
